FAERS Safety Report 19967053 (Version 5)
Quarter: 2025Q2

REPORT INFORMATION
  Report Type: Report from Study
  Country: US (occurrence: US)
  Receive Date: 20211019
  Receipt Date: 20250620
  Transmission Date: 20250717
  Serious: Yes (Other)
  Sender: RANBAXY
  Company Number: US-SUN PHARMACEUTICAL INDUSTRIES LTD-2021R1-314050

PATIENT
  Age: 27 Year
  Sex: Male

DRUGS (1)
  1. CLOZAPINE [Suspect]
     Active Substance: CLOZAPINE
     Indication: Product used for unknown indication
     Route: 065

REACTIONS (11)
  - Epileptic psychosis [Unknown]
  - Coma [Unknown]
  - Acute respiratory failure [Unknown]
  - Renal failure [Unknown]
  - Cardiac arrest [Unknown]
  - Vomiting [Unknown]
  - Neutrophilia [Unknown]
  - Rash [Unknown]
  - Gastrointestinal disorder [Unknown]
  - Lethargy [Unknown]
  - Dizziness [Unknown]

NARRATIVE: CASE EVENT DATE: 20200512
